FAERS Safety Report 15654748 (Version 2)
Quarter: 2018Q4

REPORT INFORMATION
  Report Type: Report from Study
  Country: CA (occurrence: CA)
  Receive Date: 20181126
  Receipt Date: 20181201
  Transmission Date: 20190205
  Serious: Yes (Hospitalization, Other)
  Sender: FDA-Public Use
  Company Number: CA-AMGEN-CANSP2012079704

PATIENT
  Age: 45 Year
  Sex: Female

DRUGS (35)
  1. ENBREL [Suspect]
     Active Substance: ETANERCEPT
     Indication: RHEUMATOID ARTHRITIS
     Dosage: 25 MG, 2 TIMES/WK
     Route: 065
     Dates: start: 20011121, end: 2015
  2. ENBREL [Interacting]
     Active Substance: ETANERCEPT
     Dosage: 25 MG, 2 TIMES/WK
     Route: 065
  3. GAVISCON [Concomitant]
     Active Substance: ALUMINUM HYDROXIDE\MAGNESIUM CARBONATE
     Dosage: UNK
  4. COD LIVER OIL [Concomitant]
     Active Substance: COD LIVER OIL
     Dosage: UNK
  5. IRON [Concomitant]
     Active Substance: IRON
     Dosage: 300 MG, QD
  6. REACTINE PLUS SINUS [Concomitant]
     Dosage: 2 TABLETS PER DAY
  7. ORENCIA [Concomitant]
     Active Substance: ABATACEPT
     Dosage: UNK
     Route: 065
     Dates: start: 201609
  8. VITAMIN B COMPLEX [Concomitant]
     Active Substance: CYANOCOBALAMIN\DEXPANTHENOL\NIACINAMIDE\PYRIDOXINE HYDROCHLORIDE\RIBOFLAVIN 5^-PHOSPHATE SODIUM\THIAMINE HYDROCHLORIDE\VITAMIN B COMPLEX
     Dosage: UNK
  9. CODEINE [Concomitant]
     Active Substance: CODEINE
     Dosage: UNK
  10. ENBREL [Interacting]
     Active Substance: ETANERCEPT
     Dosage: 25 MG, QWK
     Route: 065
     Dates: start: 2015, end: 2015
  11. NEXIUM [Concomitant]
     Active Substance: ESOMEPRAZOLE MAGNESIUM
     Indication: GASTROOESOPHAGEAL REFLUX DISEASE
     Dosage: 40 MG, BID
  12. OMEGA 3-6-9 [Concomitant]
     Active Substance: FISH OIL
     Dosage: UNK
  13. ARAVA [Concomitant]
     Active Substance: LEFLUNOMIDE
     Dosage: 20 MG, UNK
  14. HUMIRA [Concomitant]
     Active Substance: ADALIMUMAB
     Dosage: UNK
  15. ERGOCALCIFEROL. [Concomitant]
     Active Substance: ERGOCALCIFEROL
     Dosage: 2000 IU, UNK
  16. ESOMEPRAZOLE MAGNESIUM TRIHYDRATE [Concomitant]
     Active Substance: ESOMEPRAZOLE MAGNESIUM
     Dosage: 40 MG, (2 EVERY 1 DAY)
  17. RANITIDINE. [Concomitant]
     Active Substance: RANITIDINE
     Dosage: 600 MG, UNK
  18. CRESTOR [Concomitant]
     Active Substance: ROSUVASTATIN CALCIUM
     Indication: BLOOD CHOLESTEROL
     Dosage: UNK
  19. CENTRUM [Concomitant]
     Active Substance: VITAMINS
     Dosage: UNK
  20. CALCIUM [Concomitant]
     Active Substance: CALCIUM
     Dosage: UNK
  21. PREDNISONE. [Concomitant]
     Active Substance: PREDNISONE
     Dosage: 20 MG, QD
  22. ENBREL [Interacting]
     Active Substance: ETANERCEPT
     Dosage: 50 MG, QWK
     Route: 065
     Dates: start: 2015
  23. MELOXICAM. [Concomitant]
     Active Substance: MELOXICAM
     Dosage: UNK
  24. VITAMIN D [Concomitant]
     Active Substance: CHOLECALCIFEROL
     Dosage: 2000 IU, UNK
  25. FOSAVANCE [Concomitant]
     Active Substance: ALENDRONATE SODIUM\CHOLECALCIFEROL
     Dosage: UNK UNK, QWK
  26. PREDNISONE. [Concomitant]
     Active Substance: PREDNISONE
     Dosage: 20 MG, QD
  27. SALMON OIL [Concomitant]
     Active Substance: FISH OIL
     Dosage: UNK
  28. CETIRIZINE HYDROCHLORIDE. [Concomitant]
     Active Substance: CETIRIZINE HYDROCHLORIDE
     Dosage: UNK UNK, QD
  29. TYLENOL WITH CODEINE [Concomitant]
     Active Substance: ACETAMINOPHEN\CODEINE PHOSPHATE
     Dosage: UNK
  30. FOLIC ACID. [Concomitant]
     Active Substance: FOLIC ACID
     Dosage: UNK
  31. VIT B COMPLEX [Concomitant]
     Dosage: UNK
  32. METHOTREXATE. [Interacting]
     Active Substance: METHOTREXATE
     Indication: PRODUCT USED FOR UNKNOWN INDICATION
     Dosage: UNK
     Route: 065
  33. FLAXSEED [Concomitant]
     Active Substance: FLAX SEED
     Dosage: UNK
  34. FORTEO [Concomitant]
     Active Substance: TERIPARATIDE
     Dosage: UNK
  35. ROSUVASTATIN CALCIUM. [Concomitant]
     Active Substance: ROSUVASTATIN CALCIUM
     Indication: BLOOD CHOLESTEROL
     Dosage: UNK

REACTIONS (25)
  - Dysstasia [Not Recovered/Not Resolved]
  - Malignant melanoma in situ [Not Recovered/Not Resolved]
  - Bone erosion [Not Recovered/Not Resolved]
  - Arthropathy [Not Recovered/Not Resolved]
  - Sinusitis bacterial [Not Recovered/Not Resolved]
  - Hypoaesthesia [Not Recovered/Not Resolved]
  - Osteopenia [Not Recovered/Not Resolved]
  - Rheumatoid arthritis [Not Recovered/Not Resolved]
  - Basal cell carcinoma [Not Recovered/Not Resolved]
  - Muscle disorder [Not Recovered/Not Resolved]
  - Bursitis [Not Recovered/Not Resolved]
  - Femur fracture [Not Recovered/Not Resolved]
  - Off label use [Not Recovered/Not Resolved]
  - Drug interaction [Not Recovered/Not Resolved]
  - Fracture nonunion [Not Recovered/Not Resolved]
  - Foot fracture [Not Recovered/Not Resolved]
  - Arthralgia [Not Recovered/Not Resolved]
  - Aphthous ulcer [Not Recovered/Not Resolved]
  - Hyperkeratosis [Not Recovered/Not Resolved]
  - Hypoacusis [Not Recovered/Not Resolved]
  - Muscle tightness [Not Recovered/Not Resolved]
  - Nasal septum perforation [Not Recovered/Not Resolved]
  - Musculoskeletal disorder [Not Recovered/Not Resolved]
  - Oral disorder [Not Recovered/Not Resolved]
  - Pneumonia [Not Recovered/Not Resolved]

NARRATIVE: CASE EVENT DATE: 2003
